FAERS Safety Report 5048446-5 (Version None)
Quarter: 2006Q3

REPORT INFORMATION
  Report Type: 
  Country: None (occurrence: None)
  Receive Date: 20060703
  Receipt Date: 20060621
  Transmission Date: 20061208
  Serious: Yes (Other)
  Sender: FDA-Public Use
  Company Number: 226551

PATIENT
  Sex: Female

DRUGS (2)
  1. RITUXAN [Suspect]
     Indication: NEUROMYELITIS OPTICA
     Dosage: 375 MG/M2,  1/WEEK, INTRAVENOUS
     Route: 042
     Dates: start: 20060201, end: 20060301
  2. CYTOXAN [Suspect]
     Indication: NEUROMYELITIS OPTICA

REACTIONS (2)
  - NEUROMYELITIS OPTICA [None]
  - VERTIGO [None]
